FAERS Safety Report 12105658 (Version 3)
Quarter: 2016Q3

REPORT INFORMATION
  Report Type: Report from Study
  Country: CA (occurrence: CA)
  Receive Date: 20160223
  Receipt Date: 20160728
  Transmission Date: 20161109
  Serious: Yes (Hospitalization, Other)
  Sender: FDA-Public Use
  Company Number: PHHY2015CA167046

PATIENT
  Age: 75 Year
  Sex: Male

DRUGS (4)
  1. MEKINIST [Suspect]
     Active Substance: TRAMETINIB DIMETHYL SULFOXIDE
     Indication: METASTATIC MALIGNANT MELANOMA
     Dosage: 2 MG, QD
     Route: 048
     Dates: start: 20151211, end: 20160629
  2. MORPHINE [Concomitant]
     Active Substance: MORPHINE
     Indication: PRODUCT USED FOR UNKNOWN INDICATION
     Dosage: UNK
     Route: 065
  3. HEPARIN [Concomitant]
     Active Substance: HEPARIN SODIUM
     Indication: PRODUCT USED FOR UNKNOWN INDICATION
     Dosage: UNK (LOWER DOSE)
     Route: 065
  4. TAFINLAR [Suspect]
     Active Substance: DABRAFENIB MESYLATE
     Indication: METASTATIC MALIGNANT MELANOMA
     Dosage: 300 MG, QD
     Route: 048
     Dates: start: 20151211, end: 20160629

REACTIONS (18)
  - Constipation [Unknown]
  - Nausea [Not Recovered/Not Resolved]
  - Confusional state [Unknown]
  - Hypertension [Unknown]
  - Tachycardia [Recovered/Resolved]
  - Tremor [Unknown]
  - Chills [Unknown]
  - Pulmonary embolism [Recovered/Resolved]
  - Chest pain [Recovered/Resolved]
  - Phlebitis [Unknown]
  - Hypophagia [Unknown]
  - Vomiting [Not Recovered/Not Resolved]
  - Diarrhoea [Unknown]
  - Amnesia [Unknown]
  - Diplopia [Unknown]
  - Pain [Unknown]
  - Pyrexia [Recovering/Resolving]
  - Infrequent bowel movements [Unknown]

NARRATIVE: CASE EVENT DATE: 20151217
